FAERS Safety Report 8585913 (Version 4)
Quarter: 2012Q4

REPORT INFORMATION
  Report Type: 
  Country: FR (occurrence: FR)
  Receive Date: 20120530
  Receipt Date: 20121115
  Transmission Date: 20130627
  Serious: Yes (Death, Life-Threatening, Hospitalization, Other)
  Sender: FDA-Public Use
  Company Number: FR-PFIZER INC-2012128813

PATIENT
  Age: 44 Year
  Sex: Female

DRUGS (3)
  1. ARGANOVA [Suspect]
     Indication: ANTICOAGULANT THERAPY
     Dosage: 2.4 ml/hr (unknown daily dose)
     Route: 042
     Dates: start: 20120504, end: 20120505
  2. ASPEGIC [Concomitant]
     Indication: ISCHAEMIC STROKE
     Dosage: 1 DF, 1x/day
     Dates: end: 20120507
  3. ORGARAN [Concomitant]
     Indication: ANTICOAGULANT THERAPY
     Dosage: 4000 IU, 2x/day
     Dates: start: 2008, end: 20120503

REACTIONS (4)
  - Splenic haemorrhage [Fatal]
  - Hepatic failure [Unknown]
  - Abdominal wall haematoma [Unknown]
  - Haemorrhage [Fatal]
